FAERS Safety Report 9352194 (Version 1)
Quarter: 2013Q2

REPORT INFORMATION
  Report Type: Spontaneous
  Country: GB (occurrence: GB)
  Receive Date: 20130617
  Receipt Date: 20130617
  Transmission Date: 20140414
  Serious: Yes (Other)
  Sender: FDA-Public Use
  Company Number: GB-VERTEX PHARMACEUTICALS INC-2013-007158

PATIENT
  Age: 60 Year
  Sex: Male

DRUGS (5)
  1. INCIVO [Suspect]
     Indication: HEPATITIS C
     Dosage: 750 MG, TID
     Route: 048
     Dates: start: 201205
  2. RIBAVIRIN [Suspect]
     Indication: HEPATITIS C
     Dosage: DOSAGE FORM: UNSPECIFIED
     Route: 065
     Dates: start: 201205
  3. PEGINTERFERON ALFA [Suspect]
     Indication: HEPATITIS C
     Dosage: DOSAGE FORM: UNSPECIFIED
     Route: 065
     Dates: start: 201205
  4. ATAZANAVIR [Concomitant]
     Indication: HIV INFECTION
     Dosage: DOSAGE FORM: UNSPECIFIED
     Route: 065
     Dates: start: 201110
  5. RALTEGRAVIR [Concomitant]
     Indication: HIV INFECTION
     Dosage: DOSAGE FORM: UNSPECIFIED
     Route: 065
     Dates: start: 201110

REACTIONS (5)
  - CD4 lymphocytes decreased [Unknown]
  - Blood creatinine increased [Recovered/Resolved]
  - Rash [Unknown]
  - Fatigue [Unknown]
  - Haemoglobin decreased [Unknown]
